FAERS Safety Report 5608470-8 (Version None)
Quarter: 2008Q1

REPORT INFORMATION
  Report Type: 
  Country: None (occurrence: None)
  Receive Date: 20080125
  Receipt Date: 20080115
  Transmission Date: 20080703
  Serious: Yes (Other)
  Sender: FDA-Public Use
  Company Number: 2008001429

PATIENT
  Age: 34 Year
  Sex: Female

DRUGS (1)
  1. BENADRYL [Suspect]
     Indication: URTICARIA
     Dosage: 1 TABLET ONCE (25 MG), ORAL
     Route: 048
     Dates: start: 20080114

REACTIONS (3)
  - CONDITION AGGRAVATED [None]
  - LIP SWELLING [None]
  - URTICARIA [None]
